FAERS Safety Report 5682180-3 (Version None)
Quarter: 2008Q1

REPORT INFORMATION
  Report Type: 
  Country: None (occurrence: None)
  Receive Date: 20080325
  Receipt Date: 20080310
  Transmission Date: 20080703
  Serious: Yes (Disabling, Other)
  Sender: FDA-Public Use
  Company Number: 2008S1004063

PATIENT
  Age: 57 Year
  Sex: Male

DRUGS (2)
  1. DOXAZOSIN (DOXAZOSIN) [Suspect]
     Indication: HYPERTENSION
     Dosage: 4 MG; TWICE A DAY; ORAL
     Route: 048
     Dates: start: 20060929, end: 20070531
  2. INDAPAMIDE [Suspect]
     Indication: HYPERTENSION
     Dosage: 1.5 MG; DAILY; ORAL
     Route: 048
     Dates: start: 20060628, end: 20070430

REACTIONS (2)
  - ANXIETY [None]
  - PANIC ATTACK [None]
